FAERS Safety Report 4896670-4 (Version None)
Quarter: 2006Q1

REPORT INFORMATION
  Report Type: 
  Country: None (occurrence: None)
  Receive Date: 20060131
  Receipt Date: 20060119
  Transmission Date: 20060701
  Serious: Yes (Hospitalization)
  Sender: FDA-Public Use
  Company Number: FR-BRISTOL-MYERS SQUIBB COMPANY-13261003

PATIENT
  Age: 55 Year
  Sex: Male

DRUGS (9)
  1. VASTEN [Suspect]
     Indication: LIPID METABOLISM DISORDER
     Dosage: 10 MG/DAY, INCREASED TO 40 MG/DAY ON 20-OCT-2005
     Route: 048
  2. PROPOFOL [Suspect]
     Indication: BACK PAIN
     Route: 048
     Dates: end: 20051114
  3. SERESTA [Suspect]
     Indication: ANXIETY
     Route: 048
     Dates: end: 20051114
  4. CELEBREX [Suspect]
     Indication: OSTEOARTHRITIS
     Route: 048
     Dates: end: 20051114
  5. ATHYMIL [Suspect]
     Indication: DYSTHYMIC DISORDER
     Route: 048
  6. ACEBUTOLOL [Concomitant]
     Route: 048
  7. TRIATEC [Concomitant]
     Route: 048
  8. TEMESTA [Concomitant]
     Route: 048
  9. OMEPRAZOLE [Concomitant]
     Route: 048

REACTIONS (5)
  - ARTERIAL STENOSIS [None]
  - CAROTID ARTERY ATHEROMA [None]
  - CORONARY ARTERY OCCLUSION [None]
  - LOW DENSITY LIPOPROTEIN INCREASED [None]
  - MYOCARDIAL INFARCTION [None]
